FAERS Safety Report 16566761 (Version 1)
Quarter: 2019Q3

REPORT INFORMATION
  Report Type: Spontaneous
  Country: IE (occurrence: IE)
  Receive Date: 20190712
  Receipt Date: 20190712
  Transmission Date: 20191004
  Serious: Yes (Death, Other)
  Sender: FDA-Public Use
  Company Number: IE-ROCHE-2335745

PATIENT
  Age: 26 Year
  Sex: Female

DRUGS (4)
  1. CYCLIZINE [Suspect]
     Active Substance: CYCLIZINE
     Indication: NAUSEA
     Route: 042
     Dates: start: 20190226
  2. XARELTO [Concomitant]
     Active Substance: RIVAROXABAN
  3. TAMIFLU [Suspect]
     Active Substance: OSELTAMIVIR PHOSPHATE
     Indication: INFLUENZA A VIRUS TEST POSITIVE
     Route: 065
  4. TAZOCIN [Suspect]
     Active Substance: PIPERACILLIN SODIUM\TAZOBACTAM SODIUM
     Indication: LOWER RESPIRATORY TRACT INFECTION
     Route: 065

REACTIONS (10)
  - Shock [Unknown]
  - Delirium [Unknown]
  - Cardiac arrest [Fatal]
  - Throat tightness [Unknown]
  - Loss of consciousness [Unknown]
  - Feeling hot [Recovered/Resolved]
  - Erythema [Unknown]
  - Unresponsive to stimuli [Recovered/Resolved]
  - Dyspnoea [Recovered/Resolved]
  - Flushing [Recovered/Resolved]

NARRATIVE: CASE EVENT DATE: 20190226
